FAERS Safety Report 9779669 (Version 1)
Quarter: 2013Q4

REPORT INFORMATION
  Report Type: Spontaneous
  Country: FR (occurrence: FR)
  Receive Date: 20131223
  Receipt Date: 20131223
  Transmission Date: 20140711
  Serious: Yes (Hospitalization)
  Sender: FDA-Public Use
  Company Number: PHHY2013FR149299

PATIENT
  Age: 60 Year
  Sex: Female

DRUGS (9)
  1. COTAREG [Suspect]
     Dosage: ONCE DAILY (QD)
     Route: 048
     Dates: end: 20131005
  2. CISPLATIN [Suspect]
     Dosage: 134.25 MG, UNK
     Route: 042
     Dates: start: 20130924, end: 20130924
  3. CONTRAMAL [Concomitant]
     Dosage: 200 MG, QD
  4. IMOVANE [Concomitant]
     Dosage: ONCE DAILY
  5. XANAX [Concomitant]
  6. IRESSA [Concomitant]
     Dosage: 250 MG, QD
  7. DOXYCYCLINE [Concomitant]
     Dosage: 100 MG, QD
  8. BEVACIZUMAB [Concomitant]
     Indication: CHEMOTHERAPY
     Dosage: 585 MG, UNK
     Dates: start: 20130924, end: 20130924
  9. PEMETREXED [Concomitant]
     Indication: CHEMOTHERAPY
     Dosage: 895 MG, UNK
     Dates: start: 20130924, end: 20130924

REACTIONS (4)
  - Renal failure acute [Recovering/Resolving]
  - Diarrhoea [Unknown]
  - Nausea [Unknown]
  - Renal tubular disorder [Recovering/Resolving]
